FAERS Safety Report 9216657 (Version 1)
Quarter: 2013Q2

REPORT INFORMATION
  Report Type: Spontaneous
  Country: US (occurrence: US)
  Receive Date: 20130408
  Receipt Date: 20130408
  Transmission Date: 20140414
  Serious: Yes (Hospitalization)
  Sender: FDA-Public Use
  Company Number: US-BAYER-2013-041162

PATIENT
  Age: 70 Year
  Sex: Male
  Weight: 103.6 kg

DRUGS (2)
  1. NEXAVAR [Suspect]
     Indication: COLON CANCER METASTATIC
     Dosage: 400 MG, BID
     Route: 048
     Dates: start: 20130118, end: 20130325
  2. CAPECITABINE [Suspect]
     Indication: COLON CANCER METASTATIC
     Dosage: 2000 MG, BID
     Route: 048
     Dates: start: 20130118, end: 20130325

REACTIONS (8)
  - Tremor [None]
  - Vomiting [None]
  - Asthenia [None]
  - White blood cell count increased [None]
  - Hypotension [None]
  - Dehydration [None]
  - Colon cancer metastatic [None]
  - Off label use [None]
